FAERS Safety Report 20757669 (Version 2)
Quarter: 2022Q2

REPORT INFORMATION
  Report Type: Spontaneous
  Country: US (occurrence: US)
  Receive Date: 20220427
  Receipt Date: 20220505
  Transmission Date: 20220721
  Serious: Yes (Hospitalization)
  Sender: FDA-Public Use
  Company Number: US-NEUROCRINE BIOSCIENCES INC.-2022NBI02627

PATIENT

DRUGS (2)
  1. ONGENTYS [Suspect]
     Active Substance: OPICAPONE
     Indication: Tremor
     Dosage: 25 MILLIGRAM
     Route: 065
  2. ONGENTYS [Suspect]
     Active Substance: OPICAPONE
     Dosage: UNK MILLIGRAM
     Route: 065

REACTIONS (7)
  - Orthostatic hypotension [Unknown]
  - Nausea [Unknown]
  - Vomiting [Unknown]
  - Gait inability [Unknown]
  - Presyncope [Unknown]
  - Insomnia [Unknown]
  - Off label use [Unknown]
